FAERS Safety Report 13796092 (Version 1)
Quarter: 2017Q3

REPORT INFORMATION
  Report Type: Spontaneous
  Country: FR (occurrence: FR)
  Receive Date: 20170726
  Receipt Date: 20170726
  Transmission Date: 20171127
  Serious: Yes (Other)
  Sender: FDA-Public Use
  Company Number: FR-BAYER-2017-139915

PATIENT
  Age: 29 Year
  Sex: Female

DRUGS (3)
  1. MIRENA [Suspect]
     Active Substance: LEVONORGESTREL
     Indication: CONTRACEPTION
     Dosage: 20 MCG/24HR, CONT
     Route: 015
     Dates: start: 2011, end: 20161003
  2. MIRENA [Suspect]
     Active Substance: LEVONORGESTREL
     Indication: CONTRACEPTION
     Dosage: 20 MCG/24HR, CONT
     Route: 015
     Dates: start: 20050901, end: 2009
  3. MIRENA [Suspect]
     Active Substance: LEVONORGESTREL
     Indication: CONTRACEPTION
     Dosage: 20 MCG/24HR, CONT
     Route: 015
     Dates: start: 2009, end: 2010

REACTIONS (20)
  - Irritable bowel syndrome [Unknown]
  - Livedo reticularis [Recovering/Resolving]
  - Hypertrichosis [Unknown]
  - Limb discomfort [Unknown]
  - Depression [Unknown]
  - Vertigo [Not Recovered/Not Resolved]
  - Hypoglycaemia [Unknown]
  - Gingival bleeding [Unknown]
  - Dental caries [Recovering/Resolving]
  - Headache [Unknown]
  - Myalgia [Unknown]
  - Deafness bilateral [Not Recovered/Not Resolved]
  - Asthenia [Recovering/Resolving]
  - Extrasystoles [Unknown]
  - Hypotension [Unknown]
  - Tachycardia [Unknown]
  - Weight decreased [Not Recovered/Not Resolved]
  - Intraocular pressure increased [Unknown]
  - Autoimmune thyroiditis [Not Recovered/Not Resolved]
  - Tinnitus [Recovering/Resolving]

NARRATIVE: CASE EVENT DATE: 2011
